FAERS Safety Report 15105886 (Version 2)
Quarter: 2018Q3

REPORT INFORMATION
  Report Type: Report from Study
  Country: SG (occurrence: SG)
  Receive Date: 20180704
  Receipt Date: 20180709
  Transmission Date: 20181010
  Serious: Yes (Hospitalization)
  Sender: FDA-Public Use
  Company Number: SG-ASTRAZENECA-2018SE85070

PATIENT
  Age: 61 Year
  Sex: Female

DRUGS (1)
  1. MEDI4736 [Suspect]
     Active Substance: DURVALUMAB
     Indication: HEPATOCELLULAR CARCINOMA
     Route: 042

REACTIONS (1)
  - Enterocolitis [Not Recovered/Not Resolved]

NARRATIVE: CASE EVENT DATE: 20180628
